FAERS Safety Report 6982938-4 (Version None)
Quarter: 2010Q3

REPORT INFORMATION
  Report Type: 
  Country: None (occurrence: None)
  Receive Date: 20100914
  Receipt Date: 20100520
  Transmission Date: 20110219
  Serious: No
  Sender: FDA-Public Use
  Company Number: US-PFIZER INC-2010043509

PATIENT
  Sex: Male
  Weight: 113.38 kg

DRUGS (2)
  1. LYRICA [Suspect]
     Indication: FLANK PAIN
     Dosage: UNK
     Dates: start: 20100301, end: 20100401
  2. ZOLOFT [Suspect]
     Indication: ANXIETY
     Dosage: UNK
     Dates: start: 20100401

REACTIONS (2)
  - ANXIETY [None]
  - DRUG INEFFECTIVE [None]
